FAERS Safety Report 6283861-3 (Version None)
Quarter: 2009Q3

REPORT INFORMATION
  Report Type: 
  Country: None (occurrence: None)
  Receive Date: 20090723
  Receipt Date: 20090723
  Transmission Date: 20100115
  Serious: Yes (Life-Threatening)
  Sender: FDA-Public Use
  Company Number: None

PATIENT
  Age: 79 Year
  Sex: Male

DRUGS (2)
  1. FENTANYL [Suspect]
     Dosage: 50 MICROGRAMS ONE TIME IV, ONE DOSE
     Route: 042
  2. MIDAZOLAM HCL [Suspect]
     Dosage: 2 MG ONE TIME IV, ONE DOSE
     Route: 042

REACTIONS (1)
  - APNOEA [None]
